FAERS Safety Report 8461811-9 (Version None)
Quarter: 2012Q2

REPORT INFORMATION
  Report Type: 
  Country: None (occurrence: None)
  Receive Date: 20120625
  Receipt Date: 20120614
  Transmission Date: 20120825
  Serious: Yes (Other)
  Sender: FDA-Public Use
  Company Number: GR-JNJFOC-20120608271

PATIENT
  Age: 49 Year
  Sex: Female
  Weight: 84 kg

DRUGS (6)
  1. FENISTIL [Concomitant]
     Indication: PREMEDICATION
     Route: 065
     Dates: start: 20120613
  2. REMICADE [Suspect]
     Indication: PSORIASIS
     Dosage: 4 VIALS FOR EACH OF THE FIRST THREE INFUSIONS
     Route: 042
  3. CORTISONE ACETATE [Concomitant]
     Indication: PREMEDICATION
     Route: 065
     Dates: start: 20120613
  4. REMICADE [Suspect]
     Dosage: FOURTH INFUSION, RECEIVED 5 VIALS
     Route: 042
     Dates: start: 20120101, end: 20120101
  5. REMICADE [Suspect]
     Dosage: 4 VIALS
     Route: 042
  6. REMICADE [Suspect]
     Dosage: FIFTH INFUSION, RECEIVED 5 VIALS
     Route: 042
     Dates: start: 20120613, end: 20120613

REACTIONS (8)
  - DRUG INEFFECTIVE [None]
  - FLUSHING [None]
  - DYSPNOEA [None]
  - ERYTHEMA [None]
  - INFUSION RELATED REACTION [None]
  - OXYGEN SATURATION DECREASED [None]
  - BLOOD PRESSURE INCREASED [None]
  - TACHYCARDIA [None]
